FAERS Safety Report 8834828 (Version 1)
Quarter: 2012Q4

REPORT INFORMATION
  Report Type: 
  Country: GB (occurrence: GB)
  Receive Date: 20121010
  Receipt Date: 20121010
  Transmission Date: 20130627
  Serious: Yes (Hospitalization, Disabling)
  Sender: FDA-Public Use
  Company Number: GB-GLAXOSMITHKLINE-B0835100A

PATIENT
  Age: 35 Year
  Sex: Female
  Weight: 50.8 kg

DRUGS (2)
  1. DUAC [Suspect]
     Indication: ACNE
     Route: 061
  2. DIANETTE [Concomitant]

REACTIONS (2)
  - Swelling face [Recovered/Resolved]
  - Blood pressure decreased [Recovered/Resolved]
